FAERS Safety Report 14839499 (Version 1)
Quarter: 2018Q2

REPORT INFORMATION
  Report Type: Spontaneous
  Country: CA (occurrence: CA)
  Receive Date: 20180502
  Receipt Date: 20180502
  Transmission Date: 20180711
  Serious: Yes (Hospitalization)
  Sender: FDA-Public Use
  Company Number: CA-TEVA-2018-CA-886714

PATIENT
  Age: 51 Year
  Sex: Male

DRUGS (2)
  1. PREGABALIN. [Suspect]
     Active Substance: PREGABALIN
     Route: 048
  2. PREGABALIN. [Suspect]
     Active Substance: PREGABALIN
     Indication: PAIN MANAGEMENT
     Route: 048

REACTIONS (4)
  - Dyskinesia [Recovered/Resolved]
  - Feeling abnormal [Recovered/Resolved]
  - Intentional product use issue [Recovered/Resolved]
  - Dyspnoea [Recovered/Resolved]
